FAERS Safety Report 18970093 (Version 2)
Quarter: 2022Q1

REPORT INFORMATION
  Report Type: Spontaneous
  Country: US (occurrence: US)
  Receive Date: 20210304
  Receipt Date: 20220301
  Transmission Date: 20220424
  Serious: No
  Sender: FDA-Public Use
  Company Number: US-AMRYT PHARMACEUTICALS DAC-AEGR005074

PATIENT
  Age: 6 Year
  Sex: Female
  Weight: 14.785 kg

DRUGS (4)
  1. MYALEPT [Suspect]
     Active Substance: METRELEPTIN
     Indication: Congenital generalised lipodystrophy
     Dosage: 0.6 MILLIGRAM, QD
     Route: 058
     Dates: start: 201502
  2. MYALEPT [Suspect]
     Active Substance: METRELEPTIN
     Dosage: 0.6 MILLIGRAM, QD
     Route: 058
     Dates: start: 202101, end: 202106
  3. MYALEPT [Suspect]
     Active Substance: METRELEPTIN
     Dosage: UNK, UNK
     Route: 058
     Dates: start: 202106
  4. FLINTSTONES MULTIPLE VITAMINS [VITAMINS NOS] [Concomitant]
     Indication: Product used for unknown indication

REACTIONS (4)
  - Weight increased [Unknown]
  - Therapy interrupted [Recovered/Resolved]
  - No adverse event [Unknown]
  - Intentional product misuse [Unknown]

NARRATIVE: CASE EVENT DATE: 20210101
